FAERS Safety Report 25333379 (Version 3)
Quarter: 2025Q2

REPORT INFORMATION
  Report Type: Spontaneous
  Country: FR (occurrence: None)
  Receive Date: 20250520
  Receipt Date: 20250614
  Transmission Date: 20250716
  Serious: Yes (Death, Life-Threatening, Hospitalization)
  Sender: HARMAN FINOCHEM
  Company Number: FR-Harman-000100

PATIENT
  Age: 67 Year
  Sex: Male

DRUGS (2)
  1. METFORMIN [Suspect]
     Active Substance: METFORMIN HYDROCHLORIDE
     Indication: Type 2 diabetes mellitus
     Route: 048
  2. BIKTARVY [Suspect]
     Active Substance: BICTEGRAVIR SODIUM\EMTRICITABINE\TENOFOVIR ALAFENAMIDE FUMARATE
     Indication: HIV infection
     Route: 048

REACTIONS (16)
  - Toxicity to various agents [Unknown]
  - Intentional overdose [Unknown]
  - Metabolic acidosis [Not Recovered/Not Resolved]
  - Hyperglycaemia [Unknown]
  - Hyperkalaemia [Unknown]
  - Anaemia [Unknown]
  - Hepatic cytolysis [Unknown]
  - Drug interaction [Unknown]
  - Disseminated intravascular coagulation [Unknown]
  - Thrombocytopenia [Unknown]
  - Shock [Unknown]
  - Multiple organ dysfunction syndrome [Unknown]
  - Acute respiratory failure [Unknown]
  - Troponin T increased [Unknown]
  - Lactic acidosis [Fatal]
  - Hepatic failure [Fatal]
